FAERS Safety Report 25468980 (Version 1)
Quarter: 2025Q2

REPORT INFORMATION
  Report Type: Spontaneous
  Country: US (occurrence: None)
  Receive Date: 20250623
  Receipt Date: 20250623
  Transmission Date: 20250716
  Serious: Yes (Hospitalization)
  Sender: FDA-CTU
  Company Number: None

PATIENT
  Sex: Male

DRUGS (3)
  1. MYCOPHENOLATE MOFETIL [Suspect]
     Active Substance: MYCOPHENOLATE MOFETIL
     Indication: Pulmonary arterial hypertension
     Dosage: FREQUENCY : TWICE A DAY;?STRENGTH:  500MG
     Route: 048
     Dates: start: 20250311
  2. ADEMPAS [Suspect]
     Active Substance: RIOCIGUAT
  3. TYVASO [Suspect]
     Active Substance: TREPROSTINIL

REACTIONS (1)
  - Lung transplant [None]
